FAERS Safety Report 14705448 (Version 1)
Quarter: 2018Q2

REPORT INFORMATION
  Report Type: Spontaneous
  Country: FR (occurrence: FR)
  Receive Date: 20180402
  Receipt Date: 20180402
  Transmission Date: 20180711
  Serious: Yes (Hospitalization)
  Sender: FDA-Public Use
  Company Number: FR-SA-2018SA089866

PATIENT
  Age: 16 Year
  Sex: Female

DRUGS (4)
  1. ZOLPIDEM TARTRATE. [Suspect]
     Active Substance: ZOLPIDEM TARTRATE
     Route: 048
     Dates: start: 20130412, end: 20130412
  2. IXPRIM [Suspect]
     Active Substance: ACETAMINOPHEN\TRAMADOL HYDROCHLORIDE
     Route: 065
     Dates: start: 20130412, end: 20130412
  3. FLANID [Suspect]
     Active Substance: TIAPROFENIC ACID
     Route: 065
     Dates: start: 20130412, end: 20130412
  4. PROCORALAN [Suspect]
     Active Substance: IVABRADINE
     Route: 048
     Dates: start: 20130412, end: 20130412

REACTIONS (4)
  - Intentional overdose [Unknown]
  - Cardiac arrest [Recovered/Resolved]
  - Drug administered to patient of inappropriate age [Unknown]
  - Bradycardia [Recovered/Resolved]

NARRATIVE: CASE EVENT DATE: 20130412
